FAERS Safety Report 15807891 (Version 3)
Quarter: 2019Q1

REPORT INFORMATION
  Report Type: Spontaneous
  Country: PL (occurrence: PL)
  Receive Date: 20190110
  Receipt Date: 20190129
  Transmission Date: 20190417
  Serious: Yes (Death, Life-Threatening, Hospitalization, Other)
  Sender: FDA-Public Use
  Company Number: PL-ALLERGAN-1900611US

PATIENT
  Age: 31 Year
  Sex: Male

DRUGS (20)
  1. ANTITHYMOCYTE IMMUNOGLOBULIN [Suspect]
     Active Substance: THYMOCYTE IMMUNE GLOBULIN NOS
     Indication: TRANSPLANT REJECTION
     Dosage: 800 MG, UNK
     Route: 065
  2. PREDNISONE. [Suspect]
     Active Substance: PREDNISONE
     Indication: IMMUNOSUPPRESSION
     Dosage: 30 MG, UNK
     Route: 065
  3. GANCICLOVIR. [Concomitant]
     Active Substance: GANCICLOVIR
     Indication: ANTIVIRAL PROPHYLAXIS
     Dosage: 5 MG/KG, BID
     Route: 042
  4. TACROLIMUS. [Suspect]
     Active Substance: TACROLIMUS
     Indication: IMMUNOSUPPRESSION
     Dosage: UNK
     Route: 065
  5. TACROLIMUS. [Suspect]
     Active Substance: TACROLIMUS
     Indication: TRANSPLANT REJECTION
  6. BORTEZOMIB. [Suspect]
     Active Substance: BORTEZOMIB
     Indication: TRANSPLANT REJECTION
     Dosage: 4 X 2 MG 1.25 MG/M2 OF BODY SURFACE (INFUSIONS)
     Route: 065
  7. MESALAZINE UNK [Suspect]
     Active Substance: MESALAMINE
     Indication: COLITIS ULCERATIVE
     Dosage: UNK
     Route: 065
  8. ANTITHYMOCYTE IMMUNOGLOBULIN [Suspect]
     Active Substance: THYMOCYTE IMMUNE GLOBULIN NOS
     Indication: LIVER FUNCTION TEST ABNORMAL
     Dosage: 1000 MG/KG, (INFUSION)
     Route: 065
  9. GANCICLOVIR. [Concomitant]
     Active Substance: GANCICLOVIR
     Dosage: 10 MG/KG, BID
  10. METHYLPREDNISOLONE. [Suspect]
     Active Substance: METHYLPREDNISOLONE
     Indication: TRANSPLANT REJECTION
     Dosage: 40 MG, QD
     Route: 065
  11. VALGANCICLOVIR. [Concomitant]
     Active Substance: VALGANCICLOVIR
     Indication: ANTIVIRAL PROPHYLAXIS
     Dosage: 900 UNK, UNK
     Route: 065
  12. GANCICLOVIR. [Concomitant]
     Active Substance: GANCICLOVIR
     Dosage: 5 MG/KG, BID
     Route: 042
  13. MYCOPHENOLATE MOFETIL. [Suspect]
     Active Substance: MYCOPHENOLATE MOFETIL
     Indication: TRANSPLANT REJECTION
     Dosage: 3 G, QD
     Route: 065
  14. PREDNISONE. [Suspect]
     Active Substance: PREDNISONE
     Indication: TRANSPLANT REJECTION
     Dosage: UNK
     Route: 065
  15. METHYLPREDNISOLONE. [Suspect]
     Active Substance: METHYLPREDNISOLONE
     Indication: IMMUNOSUPPRESSION
     Dosage: 120 MG, UNK
     Route: 065
  16. BORTEZOMIB. [Suspect]
     Active Substance: BORTEZOMIB
     Indication: CHOLESTASIS
  17. METHYLPREDNISOLONE. [Suspect]
     Active Substance: METHYLPREDNISOLONE
     Dosage: UNK
     Route: 065
  18. MYCOPHENOLATE MOFETIL. [Suspect]
     Active Substance: MYCOPHENOLATE MOFETIL
     Indication: IMMUNOSUPPRESSION
     Dosage: UNK
     Route: 065
  19. GANCICLOVIR. [Concomitant]
     Active Substance: GANCICLOVIR
     Dosage: 6 MG/KG, BID
     Route: 042
  20. VALGANCICLOVIR. [Concomitant]
     Active Substance: VALGANCICLOVIR
     Dosage: 450 MG, QD
     Route: 065

REACTIONS (15)
  - Upper respiratory tract infection [Unknown]
  - Pyrexia [Recovering/Resolving]
  - Drug ineffective [Unknown]
  - Neutropenia [Unknown]
  - Respiratory distress [Fatal]
  - Pulmonary fibrosis [Fatal]
  - Liver function test abnormal [Recovering/Resolving]
  - Tachypnoea [Fatal]
  - Thrombocytopenia [Unknown]
  - Cytomegalovirus infection [Recovering/Resolving]
  - Pneumocystis jirovecii infection [Unknown]
  - Influenza like illness [Unknown]
  - Hypogammaglobulinaemia [Unknown]
  - Cough [Fatal]
  - Leukocytosis [Unknown]

NARRATIVE: CASE EVENT DATE: 201412
